FAERS Safety Report 18265580 (Version 1)
Quarter: 2020Q3

REPORT INFORMATION
  Report Type: Spontaneous
  Country: CN (occurrence: CN)
  Receive Date: 20200914
  Receipt Date: 20200914
  Transmission Date: 20201103
  Serious: Yes (Disabling, Other)
  Sender: FDA-Public Use
  Company Number: CN-BAXTER-2020BAX018497

PATIENT
  Age: 12 Year
  Sex: Male
  Weight: 38.5 kg

DRUGS (9)
  1. ENDOXAN [Suspect]
     Active Substance: CYCLOPHOSPHAMIDE
     Dosage: ENDOXAN 1.3 G + GS 500 ML
     Route: 041
     Dates: start: 20200816, end: 20200816
  2. VINDESINE SULFATE [Suspect]
     Active Substance: VINDESINE SULFATE
     Dosage: VINDESINE SULFATE 3.3 MG + NS 500 ML
     Route: 041
     Dates: start: 20200816, end: 20200816
  3. DOXORUBICIN HYDROCHLORIDE LIPOSOMAL [Suspect]
     Active Substance: DOXORUBICIN HYDROCHLORIDE
     Indication: EWING^S SARCOMA
     Dosage: PRIOR ADVERSE DRUG REGIMEN
     Route: 065
  4. 0.9% SODIUM CHLORIDE INJECTION [Suspect]
     Active Substance: SODIUM CHLORIDE
     Indication: MEDICATION DILUTION
     Dosage: VINDESINE SULFATE 3.3 MG + NS 500 ML
     Route: 041
     Dates: start: 20200816, end: 20200816
  5. 5% GLUCOSE  INJECTION [Suspect]
     Active Substance: DEXTROSE
     Dosage: ENDOXAN 1.3 G + GS 500 ML
     Route: 041
     Dates: start: 20200816, end: 20200816
  6. 5% GLUCOSE  INJECTION [Suspect]
     Active Substance: DEXTROSE
     Indication: MEDICATION DILUTION
     Dosage: DOXORUBICIN HYDROCHLORIDE LIPOSOMAL 70 MG + GS 500 ML
     Route: 041
     Dates: start: 20200816, end: 20200816
  7. VINDESINE SULFATE [Suspect]
     Active Substance: VINDESINE SULFATE
     Indication: EWING^S SARCOMA
     Dosage: PRIOR ADVERSE DRUG REGIMEN
     Route: 065
  8. DOXORUBICIN HYDROCHLORIDE LIPOSOMAL [Suspect]
     Active Substance: DOXORUBICIN HYDROCHLORIDE
     Dosage: DOXORUBICIN HYDROCHLORIDE LIPOSOMAL 70 MG + GS 500 ML
     Route: 041
     Dates: start: 20200816, end: 20200816
  9. ENDOXAN [Suspect]
     Active Substance: CYCLOPHOSPHAMIDE
     Indication: EWING^S SARCOMA
     Dosage: PRIOR ADVERSE DRUG REGIMEN
     Route: 065

REACTIONS (2)
  - Myelosuppression [Recovered/Resolved]
  - Myelosuppression [Unknown]

NARRATIVE: CASE EVENT DATE: 20200825
